FAERS Safety Report 20783080 (Version 2)
Quarter: 2022Q3

REPORT INFORMATION
  Report Type: Report from Study
  Country: US (occurrence: US)
  Receive Date: 20220504
  Receipt Date: 20220922
  Transmission Date: 20221026
  Serious: Yes (Hospitalization)
  Sender: FDA-Public Use
  Company Number: US-PFIZER INC-202200617215

PATIENT
  Age: 67 Year
  Sex: Female
  Weight: 98.5 kg

DRUGS (2)
  1. TALAZOPARIB [Suspect]
     Active Substance: TALAZOPARIB
     Indication: Breast cancer
     Dosage: 1 MG, QD
     Route: 048
     Dates: start: 20220223, end: 20220419
  2. GEDATOLISIB [Suspect]
     Active Substance: GEDATOLISIB
     Indication: Breast cancer
     Dosage: 1 MG, QD
     Route: 048
     Dates: start: 20220223, end: 20220415

REACTIONS (1)
  - Embolism [Recovered/Resolved with Sequelae]

NARRATIVE: CASE EVENT DATE: 20220419
